FAERS Safety Report 8198995-6 (Version None)
Quarter: 2012Q1

REPORT INFORMATION
  Report Type: 
  Country: None (occurrence: None)
  Receive Date: 20120309
  Receipt Date: 20120307
  Transmission Date: 20120608
  Serious: Yes (Hospitalization)
  Sender: FDA-Public Use
  Company Number: US-B.I. PHARMACEUTICALS,INC./RIDGEFIELD-2012-BP-01844BP

PATIENT
  Sex: Female
  Weight: 61.23 kg

DRUGS (2)
  1. PRADAXA [Suspect]
     Indication: ATRIAL FIBRILLATION
     Dates: start: 20120129, end: 20120131
  2. CIPRO [Concomitant]

REACTIONS (1)
  - CEREBROVASCULAR ACCIDENT [None]
